FAERS Safety Report 8860609 (Version 1)
Quarter: 2012Q4

REPORT INFORMATION
  Report Type: 
  Country: JP (occurrence: JP)
  Receive Date: 20121025
  Receipt Date: 20121025
  Transmission Date: 20130627
  Serious: Yes (Hospitalization)
  Sender: FDA-Public Use
  Company Number: JP-PFIZER INC-2012262997

PATIENT
  Age: 43 Year
  Sex: Female

DRUGS (1)
  1. NASANYL [Suspect]
     Indication: UTERINE LEIOMYOMA
     Dosage: UNK
     Route: 045

REACTIONS (1)
  - Road traffic accident [Unknown]
